FAERS Safety Report 19748499 (Version 1)
Quarter: 2021Q3

REPORT INFORMATION
  Report Type: Spontaneous
  Country: BG (occurrence: BG)
  Receive Date: 20210825
  Receipt Date: 20210825
  Transmission Date: 20211014
  Serious: Yes (Other)
  Sender: FDA-Public Use
  Company Number: NVSC2021BG189004

PATIENT
  Age: 74 Year
  Sex: Male

DRUGS (7)
  1. FLUOROURACIL. [Suspect]
     Active Substance: FLUOROURACIL
     Indication: COLORECTAL CANCER METASTATIC
     Dosage: UNK
     Route: 065
     Dates: start: 20200715
  2. OXALIPLATIN. [Suspect]
     Active Substance: OXALIPLATIN
     Indication: COLORECTAL CANCER METASTATIC
     Dosage: UNK
     Route: 065
     Dates: start: 20200715
  3. VECTIBIX [Suspect]
     Active Substance: PANITUMUMAB
     Indication: COLORECTAL CANCER METASTATIC
     Dosage: 200 MG
     Route: 065
     Dates: start: 20201009
  4. VECTIBIX [Suspect]
     Active Substance: PANITUMUMAB
     Dosage: 300 MG, BIW
     Route: 065
     Dates: start: 20200731, end: 2020
  5. FOLINIC ACID [Suspect]
     Active Substance: LEUCOVORIN
     Indication: COLORECTAL CANCER METASTATIC
     Dosage: UNK
     Route: 065
     Dates: start: 20200715
  6. VECTIBIX [Suspect]
     Active Substance: PANITUMUMAB
     Dosage: 200 MG, BIW
     Route: 065
     Dates: start: 20210304, end: 202104
  7. VECTIBIX [Suspect]
     Active Substance: PANITUMUMAB
     Dosage: 300 MG, TIW
     Route: 065
     Dates: start: 202104

REACTIONS (3)
  - Skin toxicity [Unknown]
  - Colorectal cancer metastatic [Not Recovered/Not Resolved]
  - Therapeutic product effect incomplete [Unknown]

NARRATIVE: CASE EVENT DATE: 2020
